FAERS Safety Report 14459484 (Version 1)
Quarter: 2018Q1

REPORT INFORMATION
  Report Type: Spontaneous
  Country: US (occurrence: US)
  Receive Date: 20180130
  Receipt Date: 20180130
  Transmission Date: 20180509
  Serious: Yes (Other)
  Sender: FDA-Public Use
  Company Number: US-ASTRAZENECA-2018SE10346

PATIENT
  Age: 48 Year
  Sex: Female
  Weight: 59 kg

DRUGS (6)
  1. RADIATION [Concomitant]
     Active Substance: RADIATION THERAPY
  2. LEVOTHYROXINE. [Concomitant]
     Active Substance: LEVOTHYROXINE
     Indication: HYPOTHYROIDISM
  3. TAXOTERE [Concomitant]
     Active Substance: DOCETAXEL
  4. CYTOXAN [Concomitant]
     Active Substance: CYCLOPHOSPHAMIDE
  5. ARIMIDEX [Suspect]
     Active Substance: ANASTROZOLE
     Indication: OESTROGEN RECEPTOR POSITIVE BREAST CANCER
     Dosage: UNKNOWN
     Route: 048
     Dates: start: 2009, end: 2013
  6. AROMASIN [Concomitant]
     Active Substance: EXEMESTANE
     Dates: start: 2013

REACTIONS (11)
  - Adenocarcinoma pancreas [Unknown]
  - Metastases to lung [Unknown]
  - Metastases to central nervous system [Unknown]
  - Malignant neoplasm progression [Unknown]
  - Metastases to lymph nodes [Unknown]
  - Breast neoplasm [Unknown]
  - Metastases to bone [Unknown]
  - Metastases to liver [Unknown]
  - Mass [Unknown]
  - Oestrogen receptor positive breast cancer [Unknown]
  - Cough [Unknown]

NARRATIVE: CASE EVENT DATE: 2009
